FAERS Safety Report 8165299-7 (Version None)
Quarter: 2012Q1

REPORT INFORMATION
  Report Type: 
  Country: None (occurrence: None)
  Receive Date: 20120223
  Receipt Date: 20120223
  Transmission Date: 20120608
  Serious: Yes (Life-Threatening)
  Sender: FDA-Public Use
  Company Number: None

PATIENT
  Age: 35 Year
  Sex: Female
  Weight: 62.1428 kg

DRUGS (1)
  1. MIRENA [Suspect]

REACTIONS (14)
  - WEIGHT INCREASED [None]
  - HEADACHE [None]
  - MOOD SWINGS [None]
  - SKIN DISCOLOURATION [None]
  - HAEMORRHAGE [None]
  - ALOPECIA [None]
  - BURNING MOUTH SYNDROME [None]
  - DYSPAREUNIA [None]
  - NAUSEA [None]
  - FATIGUE [None]
  - PAIN [None]
  - ANXIETY DISORDER [None]
  - ACNE [None]
  - MUSCLE SPASMS [None]
